FAERS Safety Report 8021559-1 (Version None)
Quarter: 2011Q4

REPORT INFORMATION
  Report Type: 
  Country: None (occurrence: None)
  Receive Date: 20111230
  Receipt Date: 20111226
  Transmission Date: 20120403
  Serious: Yes (Hospitalization)
  Sender: FDA-Public Use
  Company Number: AUR-APL-2011-06240

PATIENT
  Age: 61 Year
  Sex: Male

DRUGS (1)
  1. METFORMIN HCL [Suspect]
     Indication: TYPE 2 DIABETES MELLITUS
     Dosage: 1700 MG (1700 MG, 1 IN 1 D)

REACTIONS (5)
  - DEFICIENCY OF BILE SECRETION [None]
  - JAUNDICE CHOLESTATIC [None]
  - HEPATOTOXICITY [None]
  - ACCIDENTAL EXPOSURE [None]
  - JAUNDICE [None]
